FAERS Safety Report 7620319-0 (Version None)
Quarter: 2011Q3

REPORT INFORMATION
  Report Type: 
  Country: None (occurrence: None)
  Receive Date: 20110719
  Receipt Date: 20110705
  Transmission Date: 20111222
  Serious: Yes (Other)
  Sender: FDA-Public Use
  Company Number: PHHY2011US60633

PATIENT
  Age: 73 Year
  Sex: Male

DRUGS (8)
  1. CYTARABINE [Interacting]
     Indication: CHRONIC LYMPHOCYTIC LEUKAEMIA
     Route: 042
  2. METHOHEXITAL [Concomitant]
  3. SUCCINYLCHOLINE CHLORIDE [Interacting]
     Dosage: 70 MG, UNK
  4. SUCCINYLCHOLINE CHLORIDE [Interacting]
     Dosage: 50 MG, UNK
  5. VINCRISTINE [Interacting]
     Indication: CHRONIC LYMPHOCYTIC LEUKAEMIA
     Route: 042
  6. SUCCINYLCHOLINE CHLORIDE [Interacting]
     Dosage: 90 MG, UNK
  7. SUCCINYLCHOLINE CHLORIDE [Suspect]
     Dosage: 90 MG, UNK
  8. RITUXIMAB [Interacting]
     Route: 042

REACTIONS (5)
  - DIAPHRAGMATIC DISORDER [None]
  - NEUROMUSCULAR BLOCKADE [None]
  - RESPIRATION ABNORMAL [None]
  - DRUG INTERACTION [None]
  - APNOEA [None]
